FAERS Safety Report 4738461-0 (Version None)
Quarter: 2005Q3

REPORT INFORMATION
  Report Type: 
  Country: None (occurrence: None)
  Receive Date: 20050809
  Receipt Date: 20050727
  Transmission Date: 20060218
  Serious: Yes (Death)
  Sender: FDA-Public Use
  Company Number: IE-JNJFOC-20050801776

PATIENT
  Age: 50 Year
  Sex: Female

DRUGS (9)
  1. ZYDOL SR [Suspect]
     Indication: SUICIDE ATTEMPT
     Route: 048
  2. CITALOPRAM [Concomitant]
     Route: 065
  3. OLANZAPINE [Concomitant]
     Route: 065
  4. SINGULAIR [Concomitant]
     Route: 065
  5. ALBUTEROL SULFATE HFA [Concomitant]
     Route: 065
  6. SERETIDE [Concomitant]
     Route: 065
  7. SERETIDE [Concomitant]
     Route: 065
  8. COMBIVENT [Concomitant]
     Route: 065
  9. COMBIVENT [Concomitant]
     Route: 065

REACTIONS (3)
  - COMPLETED SUICIDE [None]
  - DRUG TOXICITY [None]
  - SELF-MEDICATION [None]
